FAERS Safety Report 16489845 (Version 1)
Quarter: 2019Q2

REPORT INFORMATION
  Report Type: Spontaneous
  Country: NL (occurrence: NL)
  Receive Date: 20190628
  Receipt Date: 20190628
  Transmission Date: 20190711
  Serious: Yes (Other)
  Sender: FDA-Public Use
  Company Number: NL-AMGEN-NLDSP2019101191

PATIENT
  Age: 61 Year
  Sex: Female

DRUGS (4)
  1. REPATHA [Suspect]
     Active Substance: EVOLOCUMAB
     Indication: BLOOD CHOLESTEROL INCREASED
  2. MODALIM [Concomitant]
     Active Substance: CIPROFIBRATE
     Dosage: UNK
  3. REPATHA [Suspect]
     Active Substance: EVOLOCUMAB
     Indication: CARDIAC DISORDER
     Dosage: UNK
     Route: 065
     Dates: start: 2018
  4. EZETROL [Concomitant]
     Active Substance: EZETIMIBE
     Dosage: UNK (FOR 1.5 YEARS)
     Dates: start: 2018

REACTIONS (1)
  - Renal impairment [Unknown]
